FAERS Safety Report 4693230-5 (Version None)
Quarter: 2005Q2

REPORT INFORMATION
  Report Type: 
  Country: None (occurrence: None)
  Receive Date: 20050615
  Receipt Date: 20050606
  Transmission Date: 20051028
  Serious: Yes (Hospitalization)
  Sender: FDA-Public Use
  Company Number: GBWYE719006JUN05

PATIENT
  Age: 76 Year
  Sex: Male

DRUGS (3)
  1. ADVIL [Suspect]
     Indication: CARDIAC FAILURE CONGESTIVE
     Dosage: ORAL
     Route: 048
     Dates: end: 20050511
  2. FUROSEMIDE [Suspect]
     Indication: CARDIAC FAILURE CONGESTIVE
     Dosage: 40MG FREQUENCY UNSPECIFIED, ORAL
     Route: 048
     Dates: end: 20050511
  3. RAMIPRIL (RAMIPRIL, ,0) [Suspect]
     Indication: CARDIAC FAILURE CONGESTIVE
     Dosage: 5MG FREQUENCY UNSPECIFIED, ORAL
     Route: 048
     Dates: end: 20050511

REACTIONS (1)
  - RENAL FAILURE [None]
